FAERS Safety Report 6380250-8 (Version None)
Quarter: 2009Q3

REPORT INFORMATION
  Report Type: 
  Country: None (occurrence: None)
  Receive Date: 20090923
  Receipt Date: 20090910
  Transmission Date: 20100115
  Serious: Yes (Other)
  Sender: FDA-Public Use
  Company Number: 2009AP003673

PATIENT
  Age: 72 Year
  Sex: Male

DRUGS (8)
  1. MYCOPHENOLATE MOFETIL [Suspect]
     Indication: SCLERODERMA
     Dosage: 500 MG; PO
     Route: 048
     Dates: start: 20090416, end: 20090420
  2. CALCIUM LACTATE (CALCIUM LACTATE) [Concomitant]
  3. CALCIUM PHOSPHATE (CALCIUM PHOSPHATE) [Concomitant]
  4. ERGOCALCIEEROL (ERGOCALCIFEROL) [Concomitant]
  5. FOLIC ACID [Concomitant]
  6. LISINOPRIL [Concomitant]
  7. NIFEDIPINE [Concomitant]
  8. VITAMIN D AND ANALOGUES (VITAMIN D AND ANALOGUES) [Concomitant]

REACTIONS (3)
  - ABDOMINAL PAIN [None]
  - MOUTH HAEMORRHAGE [None]
  - MOUTH ULCERATION [None]
